FAERS Safety Report 10884225 (Version 1)
Quarter: 2015Q1

REPORT INFORMATION
  Report Type: Spontaneous
  Country: AT (occurrence: None)
  Receive Date: 20150227
  Receipt Date: 20150227
  Transmission Date: 20150721
  Serious: Yes (Death)
  Sender: FDA-Public Use
  Company Number: FK201500856

PATIENT
  Age: 50 Year
  Sex: Male

DRUGS (2)
  1. PROTAMINE SULFATE (MANUFACTURER UNKNOWN) (PROTAMINE SULFATE) [Suspect]
     Active Substance: PROTAMINE SULFATE
     Indication: PROCOAGULANT THERAPY
  2. HEPARIN SODIUM(MANUFACTURER UNKNOWN) (HEPARIN SODIUM) (HEPARIN SODIUM) [Suspect]
     Active Substance: HEPARIN SODIUM
     Indication: ANTICOAGULANT THERAPY

REACTIONS (2)
  - Thrombocytopenia [None]
  - Embolism [None]
